FAERS Safety Report 9335613 (Version 2)
Quarter: 2013Q4

REPORT INFORMATION
  Report Type: Spontaneous
  Country: FR (occurrence: FR)
  Receive Date: 20130607
  Receipt Date: 20131108
  Transmission Date: 20140711
  Serious: Yes (Other)
  Sender: FDA-Public Use
  Company Number: FR-AMGEN-FRASP2013040013

PATIENT
  Age: 46 Year
  Sex: Male

DRUGS (3)
  1. ENBREL [Suspect]
     Indication: PSORIATIC ARTHROPATHY
     Dosage: 50 MG,  (EVERY 14 DAYS)   UNK
     Route: 058
     Dates: start: 20110606, end: 20130416
  2. HUMIRA [Suspect]
     Indication: PSORIATIC ARTHROPATHY
     Dosage: 40 MG, EVERY 14 DAYS
     Route: 058
     Dates: start: 2005, end: 20100608
  3. HUMIRA [Suspect]
     Dosage: 40 MG, MONTHLY
     Route: 058
     Dates: start: 20100608, end: 20110606

REACTIONS (4)
  - Cerebellar syndrome [Unknown]
  - Myalgia [Unknown]
  - Tremor [Unknown]
  - Ataxia [Unknown]
